FAERS Safety Report 21170352 (Version 2)
Quarter: 2022Q3

REPORT INFORMATION
  Report Type: Spontaneous
  Country: US (occurrence: US)
  Receive Date: 20220804
  Receipt Date: 20220824
  Transmission Date: 20221027
  Serious: Yes (Hospitalization, Other)
  Sender: FDA-Public Use
  Company Number: US-ALKEM LABORATORIES LIMITED-US-ALKEM-2022-07906

PATIENT
  Age: 32 Year
  Sex: Female

DRUGS (3)
  1. CIPROFLOXACIN [Suspect]
     Active Substance: CIPROFLOXACIN
     Indication: Pyelonephritis
     Dosage: 400 MILLIGRAM, EVERY 12 HOURS
     Route: 042
  2. CIPROFLOXACIN [Suspect]
     Active Substance: CIPROFLOXACIN
     Indication: Sepsis
  3. TIZANIDINE [Suspect]
     Active Substance: TIZANIDINE
     Indication: Multiple sclerosis
     Dosage: 4 MILLIGRAM, PER DAY
     Route: 065

REACTIONS (4)
  - Hypoxia [Unknown]
  - Bradycardia [Unknown]
  - Hypotension [Unknown]
  - Drug interaction [Unknown]
